FAERS Safety Report 24096469 (Version 1)
Quarter: 2024Q3

REPORT INFORMATION
  Report Type: Spontaneous
  Country: CN (occurrence: CN)
  Receive Date: 20240716
  Receipt Date: 20240716
  Transmission Date: 20241017
  Serious: Yes (Hospitalization)
  Sender: BAYER
  Company Number: CN-BAYER-2024A099973

PATIENT
  Age: 23 Year
  Sex: Female
  Weight: 50 kg

DRUGS (1)
  1. YAZ [Suspect]
     Active Substance: DROSPIRENONE\ETHINYL ESTRADIOL
     Indication: Menstrual disorder
     Dosage: 1 DF, QD
     Route: 048
     Dates: start: 20240629, end: 20240708

REACTIONS (2)
  - Abdominal pain lower [Not Recovered/Not Resolved]
  - Off label use [None]

NARRATIVE: CASE EVENT DATE: 20240629
